FAERS Safety Report 19903859 (Version 9)
Quarter: 2023Q2

REPORT INFORMATION
  Report Type: Other
  Country: CA (occurrence: None)
  Receive Date: 20211001
  Receipt Date: 20230602
  Transmission Date: 20230721
  Serious: Yes (Hospitalization, Other)
  Sender: FDA-Public Use
  Company Number: CA-ROCHE-2245776

PATIENT
  Sex: Female
  Weight: 58 kg

DRUGS (45)
  1. ACTEMRA [Suspect]
     Active Substance: TOCILIZUMAB
     Indication: Rheumatoid arthritis
     Route: 042
     Dates: start: 20170816, end: 2018
  2. ACTEMRA [Suspect]
     Active Substance: TOCILIZUMAB
     Route: 042
     Dates: start: 2018, end: 2020
  3. ACTEMRA [Suspect]
     Active Substance: TOCILIZUMAB
     Route: 042
     Dates: start: 2021, end: 20210920
  4. ACTEMRA [Suspect]
     Active Substance: TOCILIZUMAB
     Dosage: (20MG/ML)?IF PATIENT WEIGHT 65 KG, GIVE 520 MG OR 26ML
     Route: 042
  5. ACTEMRA [Suspect]
     Active Substance: TOCILIZUMAB
     Route: 042
     Dates: start: 2020, end: 2021
  6. ACTEMRA [Suspect]
     Active Substance: TOCILIZUMAB
     Route: 042
     Dates: start: 20220118
  7. ACTEMRA [Suspect]
     Active Substance: TOCILIZUMAB
     Route: 042
     Dates: start: 20170916
  8. METHOTREXATE [Concomitant]
     Active Substance: METHOTREXATE
  9. FOLIC ACID [Concomitant]
     Active Substance: FOLIC ACID
  10. CELEBREX [Concomitant]
     Active Substance: CELECOXIB
  11. TYLENOL [Concomitant]
     Active Substance: ACETAMINOPHEN
     Dosage: 2 TABLET ORAL EVERY 8 HOURS WHILE AWAKE AS NEEDED PAIN
  12. SYNTHROID [Concomitant]
     Active Substance: LEVOTHYROXINE SODIUM
  13. ORENCIA [Concomitant]
     Active Substance: ABATACEPT
  14. CEFUROXIME [Concomitant]
     Active Substance: CEFUROXIME
     Route: 048
  15. FLUTICASONE [Concomitant]
     Active Substance: FLUTICASONE
     Dosage: 250 UG/INH, 1 PUFF
  16. FUROSEMIDE [Concomitant]
     Active Substance: FUROSEMIDE
     Route: 048
  17. FUROSEMIDE [Concomitant]
     Active Substance: FUROSEMIDE
     Route: 048
  18. FUROSEMIDE [Concomitant]
     Active Substance: FUROSEMIDE
     Route: 048
  19. ASPIRIN [Concomitant]
     Active Substance: ASPIRIN
     Route: 048
  20. AMITRIPTYLINE [Concomitant]
     Active Substance: AMITRIPTYLINE
     Dosage: 1 TABLET ORAL AT BEDTIME
     Route: 048
  21. CELECOXIB [Concomitant]
     Active Substance: CELECOXIB
     Route: 048
  22. CHOLECALCIFEROL [Concomitant]
     Active Substance: CHOLECALCIFEROL
     Dosage: 1000 UNITS, 1 TABLET ORAL DAILY
     Route: 048
  23. DEXLANSOPRAZOLE [Concomitant]
     Active Substance: DEXLANSOPRAZOLE
     Dosage: 1 CAPSULE ORAL DAILY
     Route: 048
  24. EZETIMIBE [Concomitant]
     Active Substance: EZETIMIBE
     Dosage: 1 TABLET ORAL AT BEDTIME
     Route: 048
  25. LEVOTHYROXINE [Concomitant]
     Active Substance: LEVOTHYROXINE
     Dosage: 1 TABLET
     Route: 048
  26. LEVOTHYROXINE [Concomitant]
     Active Substance: LEVOTHYROXINE
     Route: 048
  27. METOPROLOL [Concomitant]
     Active Substance: METOPROLOL
     Route: 048
  28. METOPROLOL [Concomitant]
     Active Substance: METOPROLOL
     Dosage: 0.5 TABLET ORAL (GIVEN BY MOUTH) AT BEDTIME,
     Route: 048
  29. METOPROLOL [Concomitant]
     Active Substance: METOPROLOL
     Dosage: 1 TABLET BY MOUTH
     Route: 048
  30. METOPROLOL [Concomitant]
     Active Substance: METOPROLOL
     Dosage: 1 TABLET BY MOUTH
     Route: 048
  31. MOXIFLOXACIN [Concomitant]
     Active Substance: MOXIFLOXACIN
     Route: 048
  32. XARELTO [Concomitant]
     Active Substance: RIVAROXABAN
     Dosage: 1 TABLET ORAL EVERY EVENING
     Route: 048
  33. PNEUMOVAX VACCIN [Concomitant]
  34. BIOTIN [Concomitant]
     Active Substance: BIOTIN
     Dosage: 1 CAPSULE
     Route: 048
  35. AVELOX [Concomitant]
     Active Substance: MOXIFLOXACIN HYDROCHLORIDE
  36. CANNABIDIOL\HERBALS [Concomitant]
     Active Substance: CANNABIDIOL\HERBALS
     Route: 060
  37. CANNABIDIOL\HERBALS [Concomitant]
     Active Substance: CANNABIDIOL\HERBALS
     Route: 048
  38. EZETIMIBE [Concomitant]
     Active Substance: EZETIMIBE
  39. OMEGA-3 ACIDS [Concomitant]
     Active Substance: OMEGA-3 FATTY ACIDS
     Dosage: 1 CAPSULE
     Route: 048
  40. ALBUTEROL [Concomitant]
     Active Substance: ALBUTEROL
     Indication: Dyspnoea
     Dosage: 100 MCG/INH, 2 PUFFS 4 TIMES AS NEEDED
  41. ALBUTEROL [Concomitant]
     Active Substance: ALBUTEROL
     Indication: Wheezing
  42. ACETAMINOPHEN\CAFFEINE\CODEINE [Concomitant]
     Active Substance: ACETAMINOPHEN\CAFFEINE\CODEINE
     Dosage: 300 MG-30 MG -15 MG
  43. ZOPICLONE [Concomitant]
     Active Substance: ZOPICLONE
  44. DEXTRAN [Concomitant]
     Active Substance: DEXTRAN
  45. TYLENOL WITH CODEINE [Concomitant]
     Active Substance: ACETAMINOPHEN\CODEINE PHOSPHATE

REACTIONS (19)
  - Pneumonia [Unknown]
  - Pneumonia [Recovered/Resolved]
  - Atrial fibrillation [Recovered/Resolved]
  - Cardiac failure [Unknown]
  - Hypotension [Recovered/Resolved]
  - Hypokalaemia [Unknown]
  - Diarrhoea [Recovered/Resolved]
  - Candida infection [Unknown]
  - Acute kidney injury [Unknown]
  - Dyspnoea [Unknown]
  - Upper respiratory tract infection [Not Recovered/Not Resolved]
  - Nasopharyngitis [Not Recovered/Not Resolved]
  - Sinusitis [Not Recovered/Not Resolved]
  - Nasal congestion [Not Recovered/Not Resolved]
  - Cough [Unknown]
  - Asthenia [Unknown]
  - Dizziness [Unknown]
  - Weight decreased [Unknown]
  - SARS-CoV-2 test positive [Unknown]

NARRATIVE: CASE EVENT DATE: 20190101
